FAERS Safety Report 18376207 (Version 2)
Quarter: 2020Q4

REPORT INFORMATION
  Report Type: Spontaneous
  Country: FR (occurrence: FR)
  Receive Date: 20201013
  Receipt Date: 20201029
  Transmission Date: 20210114
  Serious: Yes (Life-Threatening, Hospitalization, Other)
  Sender: FDA-Public Use
  Company Number: NVSC2020FR234512

PATIENT
  Age: 69 Year
  Sex: Female

DRUGS (25)
  1. TACROLIMUS. [Interacting]
     Active Substance: TACROLIMUS
     Indication: LUNG TRANSPLANT
     Dosage: 0.2 MG, Q24H (IMMEDIATE RELEASE)
     Route: 065
     Dates: start: 20200331, end: 20200331
  2. LOPINAVIR/RITONAVIR [Interacting]
     Active Substance: LOPINAVIR\RITONAVIR
     Indication: IMMUNOSUPPRESSANT DRUG THERAPY
     Dosage: 8 DOSES
     Route: 065
  3. CITALOPRAM [Concomitant]
     Active Substance: CITALOPRAM HYDROBROMIDE
     Indication: DEPRESSION
     Dosage: UNK
     Route: 065
     Dates: start: 20200327
  4. OXYGEN. [Concomitant]
     Active Substance: OXYGEN
     Indication: COVID-19
     Dosage: 1 L (PER MIN, ON DAY 20)
     Route: 065
     Dates: start: 20200405, end: 20200405
  5. OXYGEN. [Concomitant]
     Active Substance: OXYGEN
     Dosage: 8 L (PER MIN, ON DAY 13)
     Route: 065
     Dates: start: 20200329
  6. OXYGEN. [Concomitant]
     Active Substance: OXYGEN
     Dosage: 3 L (PER MIN, ON DAY 17)
     Route: 065
     Dates: start: 20200402
  7. OXYGEN. [Concomitant]
     Active Substance: OXYGEN
     Dosage: 6 L (PER MIN, ON DAY 15)
     Route: 065
     Dates: start: 20200331
  8. EVEROLIMUS. [Interacting]
     Active Substance: EVEROLIMUS
     Dosage: 0.1 MG, Q12H
     Route: 065
     Dates: start: 20200328, end: 20200330
  9. PREDNISONE. [Suspect]
     Active Substance: PREDNISONE
     Indication: LUNG TRANSPLANT
  10. LOPINAVIR/RITONAVIR [Interacting]
     Active Substance: LOPINAVIR\RITONAVIR
     Dosage: 1 DF, QD (ON DAY 11 OF SARS-COV-2 INFECTION)
     Route: 065
     Dates: start: 20200327
  11. TACROLIMUS. [Interacting]
     Active Substance: TACROLIMUS
     Indication: IMMUNOSUPPRESSANT DRUG THERAPY
     Dosage: 1 MG, Q24H (EXTENDED RELEASE)
     Route: 065
     Dates: end: 20200327
  12. OXYGEN. [Concomitant]
     Active Substance: OXYGEN
     Dosage: 5 L (PER MIN, ON DAY 12)
     Route: 065
     Dates: start: 20200328
  13. OXYGEN. [Concomitant]
     Active Substance: OXYGEN
     Dosage: 5 L (PER MIN, ON DAY 14)
     Route: 065
     Dates: start: 20200330
  14. LOPINAVIR/RITONAVIR [Interacting]
     Active Substance: LOPINAVIR\RITONAVIR
     Indication: COVID-19
     Dosage: 2 DF, QD (ON DAY 12,13 AND 14 OF SARS-COV-2 INFECTION)
     Route: 065
     Dates: start: 20200328, end: 20200330
  15. TACROLIMUS. [Interacting]
     Active Substance: TACROLIMUS
     Dosage: 0.5 MG, Q24H (IMMEDIATE RELEASE)
     Route: 065
     Dates: start: 20200328, end: 20200330
  16. OXYGEN. [Concomitant]
     Active Substance: OXYGEN
     Dosage: 5 L (PER MIN, ON DAY 16)
     Route: 065
     Dates: start: 20200401
  17. OXYGEN. [Concomitant]
     Active Substance: OXYGEN
     Dosage: 2 L (PER MIN, ON DAY 18, 19)
     Route: 065
     Dates: start: 20200403, end: 20200404
  18. EVEROLIMUS. [Interacting]
     Active Substance: EVEROLIMUS
     Indication: LUNG TRANSPLANT
     Dosage: 0.1 MG, Q24H
     Route: 065
     Dates: start: 20200331, end: 20200331
  19. MONTELUKAST [Concomitant]
     Active Substance: MONTELUKAST SODIUM
     Indication: PROPHYLAXIS
     Dosage: UNK
     Route: 065
  20. OXYGEN. [Concomitant]
     Active Substance: OXYGEN
     Dosage: 6 L (PER MIN, ON DAY 11)
     Route: 065
     Dates: start: 20200327
  21. EVEROLIMUS. [Suspect]
     Active Substance: EVEROLIMUS
     Indication: IMMUNOSUPPRESSANT DRUG THERAPY
     Dosage: 1.25 MG, Q12H, BID
     Route: 065
     Dates: end: 20200327
  22. PREDNISONE. [Suspect]
     Active Substance: PREDNISONE
     Indication: IMMUNOSUPPRESSANT DRUG THERAPY
     Dosage: 5 MILLIGRAM, DAILY
     Route: 065
  23. LOPINAVIR/RITONAVIR [Interacting]
     Active Substance: LOPINAVIR\RITONAVIR
     Dosage: 1 DF, QD (ON DAY 15 OF SARS-COV-2 INFECTION)
     Route: 065
     Dates: start: 20200331, end: 20200331
  24. AZITHROMYCIN ANHYDROUS. [Concomitant]
     Active Substance: AZITHROMYCIN ANHYDROUS
     Indication: PROPHYLAXIS AGAINST TRANSPLANT REJECTION
     Dosage: UNK
     Route: 065
     Dates: start: 20200327
  25. MONTELUKAST [Concomitant]
     Active Substance: MONTELUKAST SODIUM
     Indication: PROPHYLAXIS AGAINST TRANSPLANT REJECTION

REACTIONS (10)
  - Drug interaction [Recovered/Resolved]
  - Diarrhoea [Recovered/Resolved]
  - SARS-CoV-2 test positive [Recovered/Resolved]
  - Off label use [Unknown]
  - Product use in unapproved indication [Unknown]
  - Drug level increased [Recovered/Resolved]
  - Blood creatinine increased [Recovered/Resolved]
  - Vomiting [Recovered/Resolved]
  - Tremor [Recovered/Resolved]
  - Immunosuppressant drug level increased [Unknown]

NARRATIVE: CASE EVENT DATE: 20200327
